FAERS Safety Report 4921336-1 (Version None)
Quarter: 2006Q1

REPORT INFORMATION
  Report Type: 
  Country: None (occurrence: None)
  Receive Date: 20060222
  Receipt Date: 20060222
  Transmission Date: 20060701
  Serious: Yes (Hospitalization)
  Sender: FDA-Public Use
  Company Number: None

PATIENT
  Age: 75 Year
  Sex: Male

DRUGS (7)
  1. METHYCELLULOSE SUSPENSION REGULAR (METHYCELLULOSE) [Suspect]
     Indication: GASTROINTESTINAL DISORDER
     Dosage: ORAL
     Route: 048
     Dates: start: 20050101, end: 20051101
  2. METOPROLOL SUCCINATE [Concomitant]
  3. ATORVASTATIN CALCIUM [Concomitant]
  4. NAPROXEN [Concomitant]
  5. FINASTERIDE [Concomitant]
  6. ASPIRIN [Concomitant]
  7. ESOMEPRAZOLE [Concomitant]

REACTIONS (6)
  - CARDIAC STRESS TEST ABNORMAL [None]
  - CORONARY ARTERY OCCLUSION [None]
  - DIVERTICULUM INTESTINAL HAEMORRHAGIC [None]
  - LOSS OF CONSCIOUSNESS [None]
  - MYOCARDIAL INFARCTION [None]
  - RECTAL HAEMORRHAGE [None]
